FAERS Safety Report 8763944 (Version 1)
Quarter: 2012Q4

REPORT INFORMATION
  Report Type: 
  Country: US (occurrence: US)
  Receive Date: 20120831
  Receipt Date: 20120831
  Transmission Date: 20130627
  Serious: Yes (Hospitalization)
  Sender: FDA-Public Use
  Company Number: US-SANOFI-AVENTIS-2012SA059681

PATIENT
  Age: 66 Year
  Sex: Female
  Weight: 55 kg

DRUGS (4)
  1. ARAVA [Suspect]
     Route: 065
     Dates: start: 201104, end: 201206
  2. REMICADE [Concomitant]
     Indication: RHEUMATOID ARTHRITIS
     Route: 042
     Dates: start: 201104
  3. REMICADE [Concomitant]
     Indication: RHEUMATOID ARTHRITIS
     Dates: start: 201207
  4. MEDROL [Concomitant]
     Route: 048
     Dates: start: 201206

REACTIONS (8)
  - Implant site pain [Recovered/Resolved]
  - Incisional drainage [Recovered/Resolved]
  - Meningitis chemical [Unknown]
  - Incision site haemorrhage [Recovered/Resolved]
  - Scar [Unknown]
  - Photosensitivity reaction [Recovered/Resolved]
  - Nausea [Unknown]
  - Nightmare [Unknown]
